FAERS Safety Report 6876964-3 (Version None)
Quarter: 2010Q3

REPORT INFORMATION
  Report Type: 
  Country: None (occurrence: None)
  Receive Date: 20100727
  Receipt Date: 20100727
  Transmission Date: 20110219
  Serious: Yes (Hospitalization)
  Sender: FDA-Public Use
  Company Number: None

PATIENT
  Age: 49 Year
  Sex: Female
  Weight: 101.1521 kg

DRUGS (1)
  1. PRIALT [Suspect]
     Indication: NEUROPATHY PERIPHERAL
     Dosage: 3.501UG/DAY DAILY IT
     Route: 037
     Dates: start: 20091209, end: 20100429

REACTIONS (6)
  - APHASIA [None]
  - BURNING SENSATION [None]
  - FALL [None]
  - INAPPROPRIATE AFFECT [None]
  - MOVEMENT DISORDER [None]
  - SCREAMING [None]
